FAERS Safety Report 10215797 (Version 2)
Quarter: 2014Q2

REPORT INFORMATION
  Report Type: Spontaneous
  Country: JP (occurrence: JP)
  Receive Date: 20140604
  Receipt Date: 20140604
  Transmission Date: 20141212
  Serious: Yes (Other)
  Sender: FDA-Public Use
  Company Number: PHHY2014JP049400

PATIENT
  Age: 52 Year
  Sex: Female

DRUGS (4)
  1. LOCHOL [Suspect]
     Indication: DYSLIPIDAEMIA
     Dosage: 20 MG, DAILY
     Route: 048
     Dates: start: 20131203, end: 20140415
  2. LOCHOL [Suspect]
     Dosage: 20 MG, DAILY
     Dates: start: 20140501
  3. ZYLORIC [Suspect]
     Dosage: 100 MG, DAILY
     Route: 048
     Dates: start: 201301
  4. BONALON [Suspect]
     Dosage: UNK UKN, UNK

REACTIONS (1)
  - Hepatic function abnormal [Recovered/Resolved]
